FAERS Safety Report 9263565 (Version 1)
Quarter: 2013Q1

REPORT INFORMATION
  Report Type: Spontaneous
  Country: US (occurrence: None)
  Receive Date: 20121212
  Receipt Date: 20121212
  Transmission Date: 20140127
  Serious: No
  Sender: FDA-Public Use
  Company Number: 1210USA014624

PATIENT
  Age: 46 Year
  Sex: Male

DRUGS (3)
  1. VICTRELIS(BOCEPREVIR) CAPSULE [Suspect]
     Route: 048
     Dates: start: 20120523
  2. PEGINTRON(PEGINTERFERON ALFA-2B) POWDER INJECTION [Suspect]
     Route: 058
  3. RIBASPHERE(RIBAVIRIN)CAPSULE [Suspect]
     Dosage: 2 DEF, QAM ORAL
     Route: 048

REACTIONS (3)
  - Oedema [None]
  - Dyspnoea [None]
  - Gastric disorder [None]
